FAERS Safety Report 10832056 (Version 3)
Quarter: 2015Q2

REPORT INFORMATION
  Report Type: Spontaneous
  Country: US (occurrence: US)
  Receive Date: 20150219
  Receipt Date: 20150511
  Transmission Date: 20150821
  Serious: Yes (Hospitalization)
  Sender: FDA-Public Use
  Company Number: US-GLAXOSMITHKLINE-US2015GSK022200

PATIENT
  Sex: Female

DRUGS (3)
  1. ADCIRCA [Concomitant]
     Active Substance: TADALAFIL
  2. FLOLAN [Suspect]
     Active Substance: EPOPROSTENOL SODIUM
     Dosage: 20 NG/KG/MIN CONTINUOUSLY; CONCENTRATION: 30,000 MG/ML; PUMP RATE: 84 ML/DAY; VIAL STRENGTH: 1.5 MG
     Route: 042
     Dates: start: 20150102
  3. FLOLAN [Suspect]
     Active Substance: EPOPROSTENOL SODIUM
     Indication: PULMONARY ARTERIAL HYPERTENSION
     Dosage: 12 NG/KG/MIN CONTINUOUSLY
     Route: 042
     Dates: start: 20150102

REACTIONS (6)
  - Cardiac discomfort [Unknown]
  - Administration site rash [Unknown]
  - Administration site erythema [Unknown]
  - Heart rate irregular [Unknown]
  - Catheter site haemorrhage [Unknown]
  - Administration site pruritus [Unknown]
